FAERS Safety Report 8316951-1 (Version None)
Quarter: 2012Q2

REPORT INFORMATION
  Report Type: 
  Country: None (occurrence: None)
  Receive Date: 20120427
  Receipt Date: 20120420
  Transmission Date: 20120825
  Serious: Yes (Hospitalization, Other)
  Sender: FDA-Public Use
  Company Number: DE-PFIZER INC-2009282211

PATIENT
  Age: 84 Year
  Sex: Male
  Weight: 74 kg

DRUGS (48)
  1. AMPICILLIN AND SULBACTAM [Suspect]
     Indication: PNEUMONIA
     Dosage: 1500 MG, 3X/DAY
     Route: 042
     Dates: start: 20071127, end: 20071205
  2. PANTOPRAZOLE [Suspect]
     Dosage: 40 MG, 2X/DAY
     Route: 042
     Dates: start: 20071127, end: 20071127
  3. PANTOPRAZOLE [Suspect]
     Dosage: 40 MG, 1X/DAY
     Route: 042
     Dates: start: 20071128, end: 20071203
  4. BIOTIN [Concomitant]
     Dosage: UNK
     Route: 048
     Dates: end: 20071126
  5. DOBUTAMINE [Concomitant]
     Dosage: UNK
     Route: 042
     Dates: start: 20071127, end: 20071128
  6. ENALAPRIL MALEATE [Concomitant]
     Dosage: UNK
     Route: 048
     Dates: end: 20070701
  7. BERIPLEX HS [Concomitant]
     Dosage: UNK
     Route: 042
     Dates: start: 20071127, end: 20071127
  8. FUROSEMID ^DAK^ [Concomitant]
     Dosage: UNK
     Route: 048
     Dates: end: 20071126
  9. NITROGLYCERIN [Concomitant]
     Dosage: UNK
     Route: 060
     Dates: start: 20071126, end: 20071126
  10. PROPOFOL [Concomitant]
     Dosage: UNK
     Dates: start: 20071201, end: 20071209
  11. RIBOFLAVIN [Concomitant]
     Dosage: UNK
     Dates: end: 20071126
  12. THIAMINE [Concomitant]
     Dosage: UNK
     Dates: end: 20071126
  13. ALLOPURINOL [Concomitant]
     Dosage: UNK
     Dates: end: 20071126
  14. CALCIUM [Concomitant]
     Dosage: UNK
     Route: 042
     Dates: start: 20071128, end: 20071130
  15. CYANOCOBALAMIN [Concomitant]
     Dosage: UNK
     Route: 048
     Dates: end: 20071126
  16. FENTANYL [Concomitant]
     Dosage: UNK
     Route: 042
     Dates: start: 20071128, end: 20071128
  17. FENTANYL [Concomitant]
     Dosage: UNK
     Route: 042
     Dates: start: 20071201, end: 20071201
  18. FENTANYL [Concomitant]
     Dosage: UNK
     Route: 042
     Dates: start: 20071203, end: 20071203
  19. MARCUMAR [Concomitant]
     Dosage: UNK
     Dates: start: 19730101, end: 20071126
  20. CALCIUM [Concomitant]
     Dosage: UNK
     Route: 042
     Dates: start: 20071201, end: 20071201
  21. FENTANYL [Concomitant]
     Dosage: UNK
     Route: 042
     Dates: start: 20071129, end: 20071130
  22. FLUMAZENIL [Concomitant]
     Dosage: UNK
     Route: 042
     Dates: start: 20071203, end: 20071203
  23. DIGIMERCK [Concomitant]
     Dosage: UNK
     Route: 048
     Dates: end: 20071126
  24. FENTANYL [Concomitant]
     Dosage: UNK
     Route: 042
     Dates: start: 20071127, end: 20071127
  25. FOLIC ACID [Concomitant]
     Dosage: UNK
     Route: 048
     Dates: end: 20071126
  26. METOCLOPRAMIDE HYDROCHLORIDE [Concomitant]
     Dosage: UNK
     Route: 042
     Dates: start: 20071126, end: 20071126
  27. KONAKION [Concomitant]
     Dosage: UNK
     Dates: start: 20071127, end: 20071205
  28. ASPISOL [Concomitant]
     Dosage: UNK
     Dates: start: 20071126, end: 20071126
  29. ASCORBIC ACID [Concomitant]
     Dosage: UNK
     Route: 048
     Dates: end: 20071126
  30. METOPROLOL SUCCINATE [Concomitant]
     Dosage: UNK
     Route: 048
     Dates: start: 20071202, end: 20071207
  31. PYRIDOXINE [Concomitant]
     Dosage: UNK
     Dates: end: 20071126
  32. HEPARIN [Concomitant]
     Dosage: UNK
     Route: 042
     Dates: start: 20071126, end: 20071126
  33. LACTOSE [Concomitant]
     Dosage: UNK
     Route: 048
     Dates: end: 20071126
  34. BELOC [Concomitant]
     Dosage: UNK
     Dates: start: 20071128, end: 20071202
  35. METOPROLOL TARTRATE [Concomitant]
     Dosage: UNK
     Dates: start: 20071128, end: 20071202
  36. MIDAZOLAM [Concomitant]
     Dosage: UNK
     Dates: start: 20071127, end: 20071201
  37. DORMICUM TABLET ^ROCHE^ [Concomitant]
     Dosage: UNK
     Dates: start: 20071127, end: 20071127
  38. MORPHINE [Concomitant]
     Dosage: UNK
     Dates: start: 20071126, end: 20071126
  39. NICOTINAMIDE [Concomitant]
     Dosage: UNK
     Dates: end: 20071126
  40. PANTOTHENIC ACID [Concomitant]
     Dosage: UNK
     Dates: end: 20071126
  41. RED BLOOD CELLS, CONCENTRATED [Concomitant]
     Dosage: UNK
     Dates: start: 20071127, end: 20071128
  42. SUCROSE [Concomitant]
     Dosage: UNK
     Dates: end: 20071126
  43. FACTOR II/FACTOR IX CH/FACTOR VII/FACTOR X [Concomitant]
     Dosage: UNK
     Route: 042
     Dates: start: 20071127, end: 20071127
  44. PLASMA PROTEIN FRACTION (HUMAN) [Concomitant]
     Dosage: UNK
     Dates: start: 20071127, end: 20071127
  45. ZOLDEM [Concomitant]
     Dosage: UNK
     Dates: start: 20061201, end: 20071125
  46. AMPICILLIN AND SULBACTAM [Suspect]
     Dosage: 1500 MG, 1X/DAY
     Route: 042
     Dates: start: 20071206, end: 20071206
  47. AMPHOTERICIN B [Concomitant]
     Dosage: UNK
     Route: 048
     Dates: start: 20071202, end: 20071207
  48. ENALAPRIL MALEATE [Concomitant]
     Dosage: UNK
     Dates: start: 20070701, end: 20071126

REACTIONS (1)
  - HEPATITIS ACUTE [None]
